FAERS Safety Report 6027004-X (Version None)
Quarter: 2009Q1

REPORT INFORMATION
  Report Type: 
  Country: None (occurrence: None)
  Receive Date: 20090105
  Receipt Date: 20090102
  Transmission Date: 20090719
  Serious: Yes (Life-Threatening, Other)
  Sender: FDA-Public Use
  Company Number: PHHY2009IT00443

PATIENT
  Sex: Male

DRUGS (11)
  1. TOLEP [Suspect]
     Indication: POST-TRAUMATIC EPILEPSY
     Dosage: 1500 MG, QD
     Route: 048
     Dates: start: 20081209
  2. LORAZEPAM [Concomitant]
  3. TRITTICO [Concomitant]
  4. CARDURA [Concomitant]
  5. COMBISARTAN [Concomitant]
  6. LEXOTAN [Concomitant]
  7. CONGESCOR [Concomitant]
  8. OMEPRAZOLE [Concomitant]
  9. EFFEXOR [Concomitant]
  10. LASITONE [Concomitant]
  11. OXYBUTYNIN CHLORIDE [Concomitant]

REACTIONS (6)
  - ASTHENIA [None]
  - CONFUSIONAL STATE [None]
  - FALL [None]
  - FEMUR FRACTURE [None]
  - HYPONATRAEMIA [None]
  - VOMITING [None]
